FAERS Safety Report 11913369 (Version 1)
Quarter: 2016Q1

REPORT INFORMATION
  Report Type: Spontaneous
  Country: US (occurrence: None)
  Receive Date: 20160112
  Receipt Date: 20160112
  Transmission Date: 20160526
  Serious: No
  Sender: FDA-Public Use
  Company Number: None

PATIENT
  Age: 45 Year
  Sex: Female
  Weight: 68.04 kg

DRUGS (6)
  1. ATENOLOL. [Concomitant]
     Active Substance: ATENOLOL
  2. MIRVASO [Suspect]
     Active Substance: BRIMONIDINE TARTRATE
     Indication: ROSACEA
     Dosage: APPLY CREAM; APPLIED TO A SURFACE, USUALLY THE SKIN
     Route: 061
     Dates: start: 20160101, end: 20160103
  3. MULTIVITAMIN [Concomitant]
     Active Substance: VITAMINS
  4. CALCIUM [Concomitant]
     Active Substance: CALCIUM
  5. VITAMIN D [Concomitant]
     Active Substance: CHOLECALCIFEROL
  6. MIRVASO [Suspect]
     Active Substance: BRIMONIDINE TARTRATE
     Indication: ERYTHEMA
     Dosage: APPLY CREAM; APPLIED TO A SURFACE, USUALLY THE SKIN
     Route: 061
     Dates: start: 20160101, end: 20160103

REACTIONS (6)
  - Burning sensation [None]
  - Feeling hot [None]
  - Erythema [None]
  - Hyperaesthesia [None]
  - Flushing [None]
  - Rebound effect [None]

NARRATIVE: CASE EVENT DATE: 20160101
